FAERS Safety Report 5415936-2 (Version None)
Quarter: 2007Q3

REPORT INFORMATION
  Report Type: 
  Country: None (occurrence: None)
  Receive Date: 20070815
  Receipt Date: 20070806
  Transmission Date: 20080115
  Serious: Yes (Other)
  Sender: FDA-Public Use
  Company Number: AU-PFIZER INC-2007065600

PATIENT
  Sex: Female

DRUGS (3)
  1. LIPITOR [Suspect]
     Dosage: DAILY DOSE:10MG
  2. DIGOXIN [Concomitant]
  3. WARFARIN SODIUM [Concomitant]

REACTIONS (5)
  - DRY SKIN [None]
  - HEART VALVE REPLACEMENT [None]
  - HYPERSENSITIVITY [None]
  - PRURITUS [None]
  - URTICARIA [None]
